FAERS Safety Report 10922736 (Version 1)
Quarter: 2015Q1

REPORT INFORMATION
  Report Type: Spontaneous
  Country: US (occurrence: None)
  Receive Date: 20150313
  Receipt Date: 20150313
  Transmission Date: 20150721
  Serious: No
  Sender: FDA-Public Use
  Company Number: 15AE009

PATIENT
  Sex: Female

DRUGS (1)
  1. EQUATE IBUPROFEN [Suspect]
     Active Substance: IBUPROFEN

REACTIONS (2)
  - Malaise [None]
  - Nausea [None]
